FAERS Safety Report 7420568-0 (Version None)
Quarter: 2011Q2

REPORT INFORMATION
  Report Type: 
  Country: None (occurrence: None)
  Receive Date: 20110418
  Receipt Date: 20110412
  Transmission Date: 20111010
  Serious: Yes (Death, Other)
  Sender: FDA-Public Use
  Company Number: US-PFIZER INC-HQWYE056601JUN05

PATIENT
  Sex: Male

DRUGS (13)
  1. GLYCERYL TRINITRATE [Concomitant]
     Dosage: UNK
  2. AMIODARONE HYDROCHLORIDE [Concomitant]
     Dosage: UNK
  3. DIGOXIN [Concomitant]
     Dosage: UNK
  4. EFFEXOR [Suspect]
     Indication: DEPRESSED MOOD
     Dosage: UNK
  5. CAPTOPRIL [Concomitant]
     Dosage: 25 MG, UNK
  6. FUROSEMIDE [Concomitant]
     Dosage: UNK
  7. LANSOPRAZOLE [Concomitant]
     Dosage: UNK
  8. POTASSIUM [Concomitant]
     Dosage: UNK
  9. SIMVASTATIN [Concomitant]
     Dosage: UNK
  10. SPIRONOLACTONE [Concomitant]
     Dosage: UNK
  11. THEOPHYLLINE [Concomitant]
     Dosage: UNK
  12. ENTEX CAP [Concomitant]
     Dosage: UNK
  13. HYOSCYAMINE [Concomitant]
     Dosage: UNK

REACTIONS (1)
  - COMPLETED SUICIDE [None]
